FAERS Safety Report 10271654 (Version 2)
Quarter: 2014Q3

REPORT INFORMATION
  Report Type: Spontaneous
  Country: US (occurrence: US)
  Receive Date: 20140701
  Receipt Date: 20140701
  Transmission Date: 20150326
  Serious: No
  Sender: FDA-Public Use
  Company Number: US-SA-CERZ-11617

PATIENT
  Age: 66 Year
  Sex: Female
  Weight: 60.68 kg

DRUGS (5)
  1. CEREDASE [Concomitant]
     Active Substance: ALGLUCERASE
     Dates: start: 1990
  2. EXCEDRIN [Concomitant]
     Active Substance: ACETAMINOPHEN\ASPIRIN\CAFFEINE
     Indication: HEADACHE
  3. IRON [Concomitant]
     Active Substance: IRON
     Indication: BLOOD IRON DECREASED
  4. CEREZYME [Suspect]
     Active Substance: IMIGLUCERASE
     Indication: GAUCHER^S DISEASE
     Dosage: 3200 U, Q2W
     Route: 042
     Dates: start: 199705
  5. EXCEDRIN [Concomitant]
     Active Substance: ACETAMINOPHEN\ASPIRIN\CAFFEINE
     Indication: PAIN

REACTIONS (3)
  - Migraine [Not Recovered/Not Resolved]
  - Hypothyroidism [Unknown]
  - Hypercholesterolaemia [Unknown]
